FAERS Safety Report 8057899-X (Version None)
Quarter: 2012Q1

REPORT INFORMATION
  Report Type: 
  Country: None (occurrence: None)
  Receive Date: 20120120
  Receipt Date: 20120110
  Transmission Date: 20120608
  Serious: Yes (Hospitalization, Other)
  Sender: FDA-Public Use
  Company Number: US-BAXTER-2012BH000868

PATIENT
  Age: 77 Year
  Sex: Female

DRUGS (1)
  1. DIANEAL [Suspect]
     Indication: RENAL FAILURE CHRONIC
     Route: 033
     Dates: start: 20100501, end: 20111201

REACTIONS (3)
  - DIAPHRAGMATIC RUPTURE [None]
  - PULMONARY OEDEMA [None]
  - GASTROINTESTINAL HAEMORRHAGE [None]
